FAERS Safety Report 11397655 (Version 3)
Quarter: 2015Q3

REPORT INFORMATION
  Report Type: Report from Study
  Country: NL (occurrence: NL)
  Receive Date: 20150819
  Receipt Date: 20150827
  Transmission Date: 20151125
  Serious: Yes (Hospitalization)
  Sender: FDA-Public Use
  Company Number: NL-PFIZER INC-2015274826

PATIENT

DRUGS (2)
  1. METHYLPREDNISOLONE SODIUM SUCCINATE. [Suspect]
     Active Substance: METHYLPREDNISOLONE SODIUM SUCCINATE
     Indication: SEIZURE
     Dosage: 20 MG/KG/DAY, CYCLIC (THREE-DAY HIGH DOSE)
     Route: 042
  2. PREDNISOLONE. [Suspect]
     Active Substance: PREDNISOLONE
     Indication: SEIZURE
     Dosage: 0.5 MG/KG/DAY, CYCLIC (ALTERNATE DAY LOW DOSE, WITH A MAXIMUM OF 60 MG PER DAY)

REACTIONS (1)
  - Infection [Unknown]
